FAERS Safety Report 8470451-7 (Version None)
Quarter: 2012Q2

REPORT INFORMATION
  Report Type: 
  Country: None (occurrence: None)
  Receive Date: 20120620
  Receipt Date: 20120605
  Transmission Date: 20120825
  Serious: Yes (Hospitalization, Disabling, Other)
  Sender: FDA-Public Use
  Company Number: MIN-00852

PATIENT
  Age: 55 Year
  Sex: Female

DRUGS (7)
  1. LEVOTHYROXINE SODIUM [Concomitant]
  2. FEXOFENADINE [Concomitant]
  3. LANSOPRAZOLE [Concomitant]
  4. MINOCYCLINE HCL [Suspect]
     Indication: ROSACEA
     Dosage: 100MG PER DAY
  5. TRAZODONE HCL [Concomitant]
  6. METOCLOPRAMIDE [Concomitant]
  7. ESCITALOPRAM [Concomitant]

REACTIONS (7)
  - OSTEOARTHRITIS [None]
  - ARTHRALGIA [None]
  - SCLERAL DISCOLOURATION [None]
  - JOINT EFFUSION [None]
  - CHONDROMALACIA [None]
  - GAIT DISTURBANCE [None]
  - MENISCUS LESION [None]
